FAERS Safety Report 21122705 (Version 5)
Quarter: 2023Q1

REPORT INFORMATION
  Report Type: Report from Study
  Country: US (occurrence: US)
  Receive Date: 20220723
  Receipt Date: 20230307
  Transmission Date: 20230418
  Serious: No
  Sender: FDA-Public Use
  Company Number: US-NOVARTISTESTPH-NVSC2022US166698

PATIENT
  Sex: Female

DRUGS (3)
  1. COSENTYX [Suspect]
     Active Substance: SECUKINUMAB
     Indication: Psoriatic arthropathy
     Dosage: UNK
     Route: 065
  2. COSENTYX [Suspect]
     Active Substance: SECUKINUMAB
     Dosage: UNK (3RD DOSE)
     Route: 065
  3. COSENTYX [Suspect]
     Active Substance: SECUKINUMAB
     Dosage: UNK
     Route: 058

REACTIONS (9)
  - Eye inflammation [Unknown]
  - COVID-19 [Recovered/Resolved]
  - Blister [Unknown]
  - Psoriasis [Unknown]
  - Feeling abnormal [Unknown]
  - Fatigue [Unknown]
  - Ocular hyperaemia [Unknown]
  - Eye pain [Unknown]
  - White blood cell count increased [Unknown]
